FAERS Safety Report 9708391 (Version 2)
Quarter: 2013Q4

REPORT INFORMATION
  Report Type: Report from Study
  Country: US (occurrence: US)
  Receive Date: 20131125
  Receipt Date: 20131203
  Transmission Date: 20140711
  Serious: Yes (Death)
  Sender: FDA-Public Use
  Company Number: US-ACTELION-A-US2013-91691

PATIENT
  Age: 86 Year
  Sex: Female

DRUGS (13)
  1. VENTAVIS [Suspect]
     Indication: PULMONARY ARTERIAL HYPERTENSION
     Dosage: 5 MCG, 6-9X/DAY
     Route: 055
     Dates: start: 20120207, end: 20131026
  2. ADCIRCA [Concomitant]
     Dosage: 20 MG, UNK
  3. COUMADIN [Concomitant]
     Dosage: 6 MG, UNK
  4. METHOTREXATE [Concomitant]
     Dosage: 15 MG, Q1WEEK
  5. PREDNISONE [Concomitant]
     Dosage: 15 MG, UNK
  6. DIAMOX [Concomitant]
     Dosage: 500 MG, UNK
  7. DILTIAZEM [Concomitant]
     Dosage: 120 MG, UNK
  8. GLIPIZIDE [Concomitant]
     Dosage: 5 MG, UNK
  9. JANUVIA [Concomitant]
     Dosage: 50 MG, UNK
  10. LEVOTHYROXINE [Concomitant]
  11. METOLAZONE [Concomitant]
     Dosage: 2.5 MG, 3X/ WEEK
  12. NEXIUM [Concomitant]
     Dosage: 40 UNK, UNK
  13. OXYGEN [Concomitant]
     Dosage: CONTINUOUS

REACTIONS (3)
  - Pulmonary hypertension [Fatal]
  - Pulmonary fibrosis [Fatal]
  - Disease progression [Fatal]
